FAERS Safety Report 26134728 (Version 1)
Quarter: 2025Q4

REPORT INFORMATION
  Report Type: Spontaneous
  Country: US (occurrence: US)
  Receive Date: 20251209
  Receipt Date: 20251209
  Transmission Date: 20260117
  Serious: Yes (Hospitalization)
  Sender: ORPHAZYME
  Company Number: US-ZEVRA DENMARK A/S-ORP-000585

PATIENT
  Sex: Female

DRUGS (1)
  1. OLPRUVA [Suspect]
     Active Substance: SODIUM PHENYLBUTYRATE
     Indication: Product used for unknown indication
     Dosage: 6 GRAM, TID

REACTIONS (2)
  - Ammonia increased [Unknown]
  - Product use issue [Unknown]

NARRATIVE: CASE EVENT DATE: 20250101
